FAERS Safety Report 25118719 (Version 1)
Quarter: 2025Q1

REPORT INFORMATION
  Report Type: Spontaneous
  Country: US (occurrence: US)
  Receive Date: 20250325
  Receipt Date: 20250325
  Transmission Date: 20250409
  Serious: Yes (Death, Hospitalization, Other)
  Sender: AMGEN
  Company Number: US-AMGEN-USASP2025053495

PATIENT

DRUGS (2)
  1. PREDNISONE [Suspect]
     Active Substance: PREDNISONE
     Indication: Pulmonary nocardiosis
     Route: 065
  2. SULFAMETHOXAZOLE\TRIMETHOPRIM [Concomitant]
     Active Substance: SULFAMETHOXAZOLE\TRIMETHOPRIM
     Indication: Pulmonary nocardiosis
     Route: 065

REACTIONS (15)
  - Death [Fatal]
  - Nocardiosis [Fatal]
  - Intensive care [Unknown]
  - Unevaluable event [Unknown]
  - Pulmonary nocardiosis [Unknown]
  - Chronic kidney disease [Unknown]
  - Leukopenia [Unknown]
  - Chronic respiratory disease [Unknown]
  - Blood creatinine increased [Unknown]
  - Rash [Unknown]
  - Nausea [Unknown]
  - Vomiting [Unknown]
  - Hepatic enzyme abnormal [Unknown]
  - Oedema [Unknown]
  - Off label use [Unknown]
